FAERS Safety Report 9479334 (Version 1)
Quarter: 2013Q3

REPORT INFORMATION
  Report Type: Spontaneous
  Country: IN (occurrence: IN)
  Receive Date: 20130827
  Receipt Date: 20130827
  Transmission Date: 20140515
  Serious: Yes (Hospitalization)
  Sender: FDA-Public Use
  Company Number: PHHY2013IN091693

PATIENT
  Sex: Female

DRUGS (3)
  1. OMEPRAZOLE [Suspect]
  2. ELTROXIN [Concomitant]
  3. DERIPHYLLIN [Concomitant]

REACTIONS (6)
  - Renal failure [Recovering/Resolving]
  - Oliguria [Recovering/Resolving]
  - Vomiting [Unknown]
  - Proteinuria [Recovering/Resolving]
  - Kidney enlargement [Unknown]
  - Tubulointerstitial nephritis [Recovering/Resolving]
